FAERS Safety Report 9659412 (Version 2)
Quarter: 2013Q4

REPORT INFORMATION
  Report Type: Spontaneous
  Country: US (occurrence: US)
  Receive Date: 20131031
  Receipt Date: 20131107
  Transmission Date: 20140711
  Serious: Yes (Life-Threatening, Hospitalization)
  Sender: FDA-Public Use
  Company Number: US-DRREDDYS-USA/USA/13/0035287

PATIENT
  Age: 6 Day
  Sex: Male
  Weight: 4.4 kg

DRUGS (2)
  1. OMEPRAZOLE [Suspect]
     Indication: PRODUCT USED FOR UNKNOWN INDICATION
     Route: 064
  2. ULTRA STRENGTH TUMS [Suspect]
     Indication: PRODUCT USED FOR UNKNOWN INDICATION
     Route: 064

REACTIONS (8)
  - Convulsion neonatal [Recovered/Resolved]
  - Hypoglycaemia neonatal [Unknown]
  - Hyperbilirubinaemia neonatal [Unknown]
  - Hypocalcaemia [Recovered/Resolved]
  - Hypomagnesaemia [Recovered/Resolved]
  - Blood phosphorus increased [Recovered/Resolved]
  - Blood parathyroid hormone decreased [Recovered/Resolved]
  - Foetal exposure during pregnancy [Unknown]
